FAERS Safety Report 8333992-9 (Version None)
Quarter: 2012Q2

REPORT INFORMATION
  Report Type: 
  Country: None (occurrence: None)
  Receive Date: 20120503
  Receipt Date: 20120419
  Transmission Date: 20120825
  Serious: Yes (Death)
  Sender: FDA-Public Use
  Company Number: BE-ROCHE-1044716

PATIENT
  Sex: Female
  Weight: 65 kg

DRUGS (7)
  1. TAMIFLU [Suspect]
     Indication: INFLUENZA
     Route: 042
     Dates: start: 20120216, end: 20120218
  2. SODIUM BICARBONATE [Concomitant]
     Route: 042
     Dates: start: 20120215, end: 20120218
  3. CLAVULANATE POTASSIUM [Concomitant]
     Dates: start: 20120215, end: 20120218
  4. NOREPINEPHRINE BITARTRATE [Concomitant]
     Indication: SHOCK
     Route: 042
     Dates: start: 20120215, end: 20120218
  5. HEPARIN SODIUM [Suspect]
     Indication: EXTRACORPOREAL MEMBRANE OXYGENATION
     Route: 042
     Dates: start: 20120217, end: 20120218
  6. DOBUTAMINE HCL [Concomitant]
     Indication: CARDIOGENIC SHOCK
     Route: 042
     Dates: start: 20120215, end: 20120218
  7. AMOXICILLIN [Concomitant]
     Indication: PNEUMONIA
     Route: 042
     Dates: start: 20120215, end: 20120218

REACTIONS (2)
  - DISSEMINATED INTRAVASCULAR COAGULATION [None]
  - SHOCK HAEMORRHAGIC [None]
